FAERS Safety Report 10056199 (Version 1)
Quarter: 2014Q2

REPORT INFORMATION
  Report Type: Spontaneous
  Country: US (occurrence: US)
  Receive Date: 20140403
  Receipt Date: 20140403
  Transmission Date: 20141212
  Serious: Yes (Other)
  Sender: FDA-Public Use
  Company Number: US-BAYER-2014-049003

PATIENT
  Sex: Female

DRUGS (2)
  1. MIRENA [Suspect]
     Dosage: 20 MCG/24HR, CONT
     Route: 015
     Dates: start: 20110708, end: 20111116
  2. DEPO-PROVERA [Suspect]
     Dosage: UNK
     Dates: start: 20110630, end: 20110630

REACTIONS (3)
  - Premature delivery [None]
  - Pregnancy with contraceptive device [Recovered/Resolved]
  - Drug ineffective [None]
